FAERS Safety Report 11183763 (Version 2)
Quarter: 2015Q2

REPORT INFORMATION
  Report Type: Not Available
  Country: GB (occurrence: GB)
  Receive Date: 20150612
  Receipt Date: 20150617
  Transmission Date: 20150821
  Serious: Yes (Hospitalization)
  Sender: FDA-Public Use
  Company Number: GB-BEH-2015051577

PATIENT
  Age: 66 Year
  Sex: Female
  Weight: 55 kg

DRUGS (20)
  1. PRIVIGEN [Suspect]
     Active Substance: HUMAN IMMUNOGLOBULIN G
  2. ASPIRINE [Concomitant]
     Active Substance: ASPIRIN
  3. GENTAMICIN. [Concomitant]
     Active Substance: GENTAMICIN
  4. OTHER NUTRIENTS [Concomitant]
  5. BENDROFLUAZIDE [Concomitant]
     Active Substance: BENDROFLUMETHIAZIDE
  6. RAMIPRIL. [Concomitant]
     Active Substance: RAMIPRIL
  7. SODIUM CHLORIDE SOLUTION 0.9% [Concomitant]
  8. PRIVIGEN [Suspect]
     Active Substance: HUMAN IMMUNOGLOBULIN G
     Route: 042
     Dates: start: 20150514, end: 20150518
  9. FENTANYL. [Concomitant]
     Active Substance: FENTANYL
  10. PRIVIGEN [Suspect]
     Active Substance: HUMAN IMMUNOGLOBULIN G
     Indication: GUILLAIN-BARRE SYNDROME
  11. FONDAPARINUX [Concomitant]
     Active Substance: FONDAPARINUX
  12. CLOPIDOGREL [Concomitant]
     Active Substance: CLOPIDOGREL BISULFATE
  13. TINZAPARIN [Concomitant]
     Active Substance: TINZAPARIN
  14. NYSTATIN. [Concomitant]
     Active Substance: NYSTATIN
  15. MAGNESIUM SULFATE. [Concomitant]
     Active Substance: MAGNESIUM SULFATE
  16. NOREPINEPHRINE [Concomitant]
     Active Substance: NOREPINEPHRINE\NOREPINEPHRINE BITARTRATE
  17. PROPOFOL. [Concomitant]
     Active Substance: PROPOFOL
  18. RANITIDIN [Concomitant]
     Active Substance: RANITIDINE HYDROCHLORIDE
  19. SANDO-K [Concomitant]
     Active Substance: POTASSIUM BICARBONATE\POTASSIUM CHLORIDE
  20. SODIUM LACTATE SOLUTION [Concomitant]
     Active Substance: SODIUM LACTATE

REACTIONS (4)
  - Troponin increased [Recovering/Resolving]
  - Electrocardiogram ST segment elevation [Recovering/Resolving]
  - Left ventricular dysfunction [Recovering/Resolving]
  - Cerebrovascular accident [Recovering/Resolving]

NARRATIVE: CASE EVENT DATE: 20150518
